FAERS Safety Report 24875166 (Version 1)
Quarter: 2025Q1

REPORT INFORMATION
  Report Type: Spontaneous
  Country: US (occurrence: US)
  Receive Date: 20250122
  Receipt Date: 20250122
  Transmission Date: 20250409
  Serious: Yes (Other)
  Sender: ALEXION PHARMACEUTICALS
  Company Number: US-ASTRAZENECA-202501USA014052US

PATIENT
  Age: 31 Year

DRUGS (3)
  1. TEZSPIRE [Suspect]
     Active Substance: TEZEPELUMAB-EKKO
     Dosage: 20 MILLIGRAM, QMONTH, SOLUTION FOR INJECTION
  2. TEZSPIRE [Suspect]
     Active Substance: TEZEPELUMAB-EKKO
  3. KESIMPTA [Suspect]
     Active Substance: OFATUMUMAB
     Route: 065

REACTIONS (17)
  - Systemic lupus erythematosus [Unknown]
  - Seizure [Unknown]
  - Stress [Unknown]
  - Gait disturbance [Unknown]
  - Fall [Unknown]
  - Contusion [Unknown]
  - Swelling [Unknown]
  - Hypoaesthesia [Unknown]
  - Migraine [Unknown]
  - Headache [Unknown]
  - Muscular weakness [Unknown]
  - Asthma [Unknown]
  - Dyspnoea [Unknown]
  - Cough [Unknown]
  - Muscular weakness [Unknown]
  - Drug ineffective [Unknown]
  - Peroneal nerve palsy [Unknown]
